FAERS Safety Report 4969580-1 (Version None)
Quarter: 2006Q2

REPORT INFORMATION
  Report Type: 
  Country: None (occurrence: None)
  Receive Date: 20060406
  Receipt Date: 20060315
  Transmission Date: 20061013
  Serious: Yes (Other)
  Sender: FDA-Public Use
  Company Number: US200603004078

PATIENT
  Age: 33 Year
  Sex: Male

DRUGS (2)
  1. HUMULIN R [Suspect]
  2. GLUCOPHAGE [Concomitant]

REACTIONS (5)
  - ACCIDENT AT WORK [None]
  - BACK INJURY [None]
  - BLOOD GLUCOSE INCREASED [None]
  - INTERVERTEBRAL DISC PROTRUSION [None]
  - NEUROPATHY PERIPHERAL [None]
